FAERS Safety Report 8732678 (Version 2)
Quarter: 2012Q4

REPORT INFORMATION
  Report Type: 
  Country: FI (occurrence: FI)
  Receive Date: 20120820
  Receipt Date: 20120829
  Transmission Date: 20130627
  Serious: Yes (Death, Other)
  Sender: FDA-Public Use
  Company Number: FI-ROCHE-1102658

PATIENT
  Sex: Female

DRUGS (2)
  1. AVASTIN [Suspect]
     Indication: BREAST CANCER
     Dosage: doce increased
     Route: 065
     Dates: start: 20070528
  2. AVASTIN [Suspect]
     Dosage: doce reduced
     Dates: start: 20080611, end: 20081127

REACTIONS (3)
  - Drug ineffective [Unknown]
  - Quality of life decreased [Unknown]
  - Disease progression [Fatal]
